FAERS Safety Report 12859554 (Version 1)
Quarter: 2016Q4

REPORT INFORMATION
  Report Type: Spontaneous
  Country: ES (occurrence: ES)
  Receive Date: 20161018
  Receipt Date: 20161018
  Transmission Date: 20170207
  Serious: Yes (Death, Hospitalization)
  Sender: FDA-Public Use
  Company Number: ES-JNJFOC-20161011411

PATIENT
  Age: 67 Year
  Sex: Male

DRUGS (4)
  1. TAMSULOSIN HYDROCHLORIDE. [Concomitant]
     Active Substance: TAMSULOSIN HYDROCHLORIDE
     Indication: URINARY RETENTION
     Route: 048
     Dates: start: 20141217, end: 20150105
  2. OLYSIO [Suspect]
     Active Substance: SIMEPREVIR
     Indication: HEPATITIS C
     Route: 048
     Dates: start: 20141202, end: 20150107
  3. SOVALDI [Interacting]
     Active Substance: SOFOSBUVIR
     Indication: HEPATITIS C
     Dosage: STRENGTH- 400 MG
     Route: 048
     Dates: start: 20141202, end: 20150107
  4. TRANGOREX [Concomitant]
     Active Substance: AMIODARONE HYDROCHLORIDE
     Indication: ATRIAL FIBRILLATION
     Dosage: STRENGTH: 150 MG/ 3 ML
     Route: 041
     Dates: start: 20141222, end: 20150105

REACTIONS (8)
  - Hepatic encephalopathy [Fatal]
  - Off label use [Unknown]
  - Haemolytic anaemia [Unknown]
  - Product use issue [Unknown]
  - Multiple organ dysfunction syndrome [Fatal]
  - Drug interaction [Fatal]
  - Condition aggravated [Fatal]
  - Septic shock [Unknown]

NARRATIVE: CASE EVENT DATE: 20150105
